FAERS Safety Report 4439508-1 (Version None)
Quarter: 2004Q3

REPORT INFORMATION
  Report Type: 
  Country: None (occurrence: None)
  Receive Date: 20040830
  Receipt Date: 20040817
  Transmission Date: 20050211
  Serious: Yes (Hospitalization)
  Sender: FDA-Public Use
  Company Number: 238702

PATIENT
  Age: 77 Year
  Sex: Female
  Weight: 60 kg

DRUGS (6)
  1. NOVONORM (REPAGLINIDE) TABLET, 0.5MG [Suspect]
     Indication: DIABETES MELLITUS NON-INSULIN-DEPENDENT
     Dosage: 1 MG, QD, PER ORAL
     Route: 048
     Dates: start: 20040708, end: 20040803
  2. LASIX [Concomitant]
  3. VASTAREL ^BIOPHARMA^ (TRIMETAZIDINE HYDROCHLORIDE) [Concomitant]
  4. EUPRESSYL (URAPIDIL) [Concomitant]
  5. COVERSYL (PERINDOPRIL) [Concomitant]
  6. PLAVIX [Concomitant]

REACTIONS (3)
  - APHASIA [None]
  - HYPOGLYCAEMIA [None]
  - SYNCOPE [None]
